FAERS Safety Report 5601087-0 (Version None)
Quarter: 2008Q1

REPORT INFORMATION
  Report Type: 
  Country: None (occurrence: None)
  Receive Date: 20080124
  Receipt Date: 20080115
  Transmission Date: 20080703
  Serious: Yes (Other)
  Sender: FDA-Public Use
  Company Number: US-ASTRAZENECA-2006UW24685

PATIENT
  Age: 19352 Day
  Sex: Female
  Weight: 135 kg

DRUGS (5)
  1. SEROQUEL [Suspect]
     Indication: DEPRESSION
     Route: 048
     Dates: start: 20010423, end: 20060504
  2. AMITRIPTYLINE HCL [Concomitant]
     Dates: start: 20070401, end: 20071001
  3. ZYPREXA [Concomitant]
     Dates: start: 20010101
  4. THORAZINE [Concomitant]
  5. ADIPEX [Concomitant]
     Dates: start: 20060508, end: 20060801

REACTIONS (5)
  - BLOOD CHOLESTEROL INCREASED [None]
  - BLOOD TRIGLYCERIDES INCREASED [None]
  - CHEST PAIN [None]
  - COMA [None]
  - DIABETES MELLITUS [None]
